FAERS Safety Report 7608911-0 (Version None)
Quarter: 2011Q3

REPORT INFORMATION
  Report Type: 
  Country: None (occurrence: None)
  Receive Date: 20110714
  Receipt Date: 20110708
  Transmission Date: 20111222
  Serious: Yes (Hospitalization)
  Sender: FDA-Public Use
  Company Number: FR-PFIZER INC-2011153696

PATIENT
  Age: 73 Year
  Sex: Female

DRUGS (6)
  1. FLUCONAZOLE [Suspect]
     Indication: COMPLICATIONS OF TRANSPLANTED KIDNEY
  2. OFLOXACIN [Suspect]
     Indication: COMPLICATIONS OF TRANSPLANTED KIDNEY
  3. FLUCONAZOLE [Suspect]
     Indication: INFECTION
     Dosage: 400 MG, X3 PER WEEK
     Route: 048
     Dates: start: 20110311, end: 20110317
  4. OFLOXACIN [Suspect]
     Indication: INFECTION
     Dosage: 200 MG, 1X/DAY
     Route: 042
     Dates: start: 20110311, end: 20110317
  5. PIPERACILLIN SODIUM [Suspect]
     Indication: INFECTION
     Dosage: 4 G, TWICE PER 12HOURS
     Route: 042
     Dates: start: 20110311, end: 20110317
  6. PIPERACILLIN SODIUM [Suspect]
     Indication: COMPLICATIONS OF TRANSPLANTED KIDNEY

REACTIONS (1)
  - PANCYTOPENIA [None]
